FAERS Safety Report 15222948 (Version 1)
Quarter: 2018Q3

REPORT INFORMATION
  Report Type: Spontaneous
  Country: US (occurrence: US)
  Receive Date: 20180731
  Receipt Date: 20180731
  Transmission Date: 20181010
  Serious: No
  Sender: FDA-Public Use
  Company Number: US-ENDO PHARMACEUTICALS INC-2018-026214

PATIENT
  Sex: Female

DRUGS (2)
  1. LYRICA [Concomitant]
     Active Substance: PREGABALIN
     Indication: DIABETIC NEPHROPATHY
  2. PREDNISONE TABLETS [Suspect]
     Active Substance: PREDNISONE
     Indication: DYSPNOEA

REACTIONS (1)
  - Hyperglycaemia [Unknown]
